FAERS Safety Report 8561565-1 (Version None)
Quarter: 2012Q3

REPORT INFORMATION
  Report Type: 
  Country: None (occurrence: None)
  Receive Date: 20120802
  Receipt Date: 20120801
  Transmission Date: 20120928
  Serious: Yes (Death, Life-Threatening, Other)
  Sender: FDA-Public Use
  Company Number: PHHY2012GB066308

PATIENT
  Age: 64 Year
  Sex: Female
  Weight: 45 kg

DRUGS (8)
  1. WARFARIN SODIUM [Suspect]
     Indication: PULMONARY EMBOLISM
     Dosage: 2 MG, BID
     Route: 048
     Dates: start: 20120608, end: 20120614
  2. MICONAZOLE [Interacting]
     Indication: ORAL CANDIDIASIS
     Dosage: 5 ML
  3. CYCLIZINE [Concomitant]
  4. TRAMADOL HCL [Concomitant]
  5. LAXIDO [Concomitant]
  6. OMEPRAZOLE [Concomitant]
  7. ENOXAPARIN [Concomitant]
  8. NYSTATIN [Concomitant]

REACTIONS (4)
  - COAGULOPATHY [None]
  - DRUG INTERACTION [None]
  - RETROPERITONEAL HAEMORRHAGE [None]
  - INTERNATIONAL NORMALISED RATIO INCREASED [None]
